FAERS Safety Report 13155221 (Version 1)
Quarter: 2017Q1

REPORT INFORMATION
  Report Type: Report from Study
  Country: US (occurrence: US)
  Receive Date: 20170126
  Receipt Date: 20170126
  Transmission Date: 20170428
  Serious: Yes (Other)
  Sender: FDA-Public Use
  Company Number: US-GILEAD-2017-0252145

PATIENT
  Age: 63 Year
  Sex: Male
  Weight: 107.3 kg

DRUGS (2)
  1. NORVASC [Concomitant]
     Active Substance: AMLODIPINE BESYLATE
     Indication: PRODUCT USED FOR UNKNOWN INDICATION
     Dosage: 5 MG, QD
     Route: 048
  2. LEDIPASVIR/SOFOSBUVIR [Suspect]
     Active Substance: LEDIPASVIR\SOFOSBUVIR
     Indication: CHRONIC HEPATITIS C
     Dosage: 1 DF, QD
     Route: 048
     Dates: start: 201603, end: 20160904

REACTIONS (6)
  - Nephrolithiasis [Unknown]
  - Drug ineffective [Unknown]
  - Renal cyst [Unknown]
  - Cholelithiasis [Unknown]
  - Hepatitis C [Unknown]
  - Headache [Unknown]

NARRATIVE: CASE EVENT DATE: 20161222
